FAERS Safety Report 9417285 (Version 2)
Quarter: 2013Q4

REPORT INFORMATION
  Report Type: Spontaneous
  Country: US (occurrence: US)
  Receive Date: 20130724
  Receipt Date: 20131022
  Transmission Date: 20140711
  Serious: Yes (Hospitalization)
  Sender: FDA-Public Use
  Company Number: US-BRISTOL-MYERS SQUIBB COMPANY-19029305

PATIENT
  Age: 88 Year
  Sex: Female

DRUGS (8)
  1. ELIQUIS [Suspect]
     Indication: ATRIAL FIBRILLATION
     Route: 048
     Dates: start: 20130520, end: 20130619
  2. VITAMIN D3 [Concomitant]
  3. DONEPEZIL [Concomitant]
     Route: 048
  4. FENOFIBRATE [Concomitant]
     Route: 048
  5. GABAPENTIN [Concomitant]
     Route: 048
  6. MAGNESIUM OXIDE [Concomitant]
     Route: 048
  7. NAMENDA [Concomitant]
     Route: 048
  8. METOPROLOL [Concomitant]

REACTIONS (2)
  - Rectal haemorrhage [Recovered/Resolved]
  - Anaemia [Recovered/Resolved]
